FAERS Safety Report 23116540 (Version 2)
Quarter: 2023Q4

REPORT INFORMATION
  Report Type: Spontaneous
  Country: US (occurrence: None)
  Receive Date: 20231027
  Receipt Date: 20231214
  Transmission Date: 20240109
  Serious: Yes (Life-Threatening, Other)
  Sender: FDA-Public Use
  Company Number: 2023A242261

PATIENT
  Age: 21483 Day
  Sex: Female

DRUGS (1)
  1. SAPHNELO [Suspect]
     Active Substance: ANIFROLUMAB-FNIA
     Route: 042
     Dates: start: 20231023, end: 20231023

REACTIONS (4)
  - Anaphylactic shock [Unknown]
  - Tremor [Unknown]
  - Systemic lupus erythematosus [Unknown]
  - Mental fatigue [Unknown]

NARRATIVE: CASE EVENT DATE: 20231023
